FAERS Safety Report 8416067-X (Version None)
Quarter: 2012Q2

REPORT INFORMATION
  Report Type: 
  Country: None (occurrence: None)
  Receive Date: 20120606
  Receipt Date: 20120530
  Transmission Date: 20120825
  Serious: Yes (Death, Hospitalization)
  Sender: FDA-Public Use
  Company Number: FR-ROCHE-1073472

PATIENT
  Age: 77 Year
  Sex: Male

DRUGS (7)
  1. OXALIPLATIN [Suspect]
     Indication: HEPATIC CANCER METASTATIC
     Route: 042
     Dates: start: 20111014, end: 20120220
  2. FLUOROURACIL [Suspect]
     Indication: HEPATIC CANCER METASTATIC
     Route: 042
     Dates: start: 20111014, end: 20120220
  3. FEBUXOSTAT [Concomitant]
  4. PREDNISOLONE [Concomitant]
     Dosage: DAILY
  5. AVASTIN [Suspect]
     Indication: HEPATIC CANCER METASTATIC
     Route: 042
     Dates: start: 20111014, end: 20120220
  6. PREDNISOLONE [Concomitant]
     Dosage: DAILY
  7. SOTALOL HCL [Concomitant]
     Route: 048

REACTIONS (2)
  - DYSPNOEA [None]
  - CONDITION AGGRAVATED [None]
